FAERS Safety Report 4523862-6 (Version None)
Quarter: 2004Q4

REPORT INFORMATION
  Report Type: 
  Country: None (occurrence: None)
  Receive Date: 20041210
  Receipt Date: 20040917
  Transmission Date: 20050328
  Serious: Yes (Other)
  Sender: FDA-Public Use
  Company Number: PHEH2004US10192

PATIENT
  Age: 67 Year
  Sex: Male
  Weight: 215 kg

DRUGS (6)
  1. ATENOLOL [Concomitant]
     Indication: HYPERTENSION
     Dosage: 25 MG, QD
     Route: 048
  2. FUROSEMIDE [Concomitant]
     Indication: HYPERTENSION
     Dosage: 20 MG, QD
     Route: 048
  3. LIPITOR [Concomitant]
     Dosage: 20 MG, QD
     Route: 048
  4. ACETYLSALICYLIC ACID (NCH) [Concomitant]
     Dosage: 325 MG, QD
     Route: 048
  5. TRILEPTAL [Suspect]
     Indication: POST HERPETIC NEURALGIA
     Dosage: 300 MG, BID
     Route: 048
     Dates: start: 20031001, end: 20031201
  6. TRILEPTAL [Suspect]
     Dosage: 300 MG, BID
     Route: 048
     Dates: start: 20040101, end: 20040201

REACTIONS (4)
  - BRADYKINESIA [None]
  - MUSCLE RIGIDITY [None]
  - PARKINSONISM [None]
  - TREMOR [None]
